FAERS Safety Report 24776032 (Version 2)
Quarter: 2025Q4

REPORT INFORMATION
  Report Type: Report from Study
  Country: US (occurrence: US)
  Receive Date: 20241226
  Receipt Date: 20251230
  Transmission Date: 20260117
  Serious: Yes (Other)
  Sender: AMGEN
  Company Number: US-AMGEN-USASL2024251294

PATIENT
  Age: 75 Year
  Sex: Male

DRUGS (6)
  1. ENBREL [Suspect]
     Active Substance: ETANERCEPT
     Indication: Psoriasis
     Dosage: 50 MILLIGRAM, QWK
     Route: 058
  2. CLOBETASOL [Concomitant]
     Active Substance: CLOBETASOL
     Dosage: 0.05 PERCENT, BID (AAA BID X 2 WEEKS, TAKE 1 WEEK OFF THEN REPEAT IF NEEDED)
     Route: 061
     Dates: end: 20230322
  3. MELOXICAM [Concomitant]
     Active Substance: MELOXICAM
     Indication: Inflammation
     Dosage: 15 MILLIGRAM, QD
     Route: 048
  4. SAVISION [Concomitant]
     Indication: Multi-vitamin deficiency
     Dosage: 1 DOSAGE FORM, QD
     Route: 048
  5. XARELTO [Concomitant]
     Active Substance: RIVAROXABAN
     Indication: Thrombosis
     Dosage: 10 MILLIGRAM, QD
     Route: 048
  6. PEGASYS [Concomitant]
     Active Substance: PEGINTERFERON ALFA-2A
     Indication: Hepatitis
     Dosage: UNK UNK, QD (180 MCG/ML)
     Route: 058

REACTIONS (19)
  - Immunosuppression [Unknown]
  - Body tinea [Unknown]
  - Psoriasis [Not Recovered/Not Resolved]
  - Renal function test abnormal [Unknown]
  - Intertrigo [Unknown]
  - Seborrhoeic keratosis [Unknown]
  - Melanocytic naevus [Unknown]
  - Actinic keratosis [Unknown]
  - Lentigo [Unknown]
  - Haemangioma of skin [Unknown]
  - Hepatitis B core antibody positive [Unknown]
  - Blood urea increased [Unknown]
  - Red cell distribution width increased [Unknown]
  - Blood creatinine increased [Unknown]
  - Blood chloride increased [Unknown]
  - Blood alkaline phosphatase decreased [Unknown]
  - Hepatitis B surface antibody positive [Unknown]
  - Hepatitis C antibody positive [Unknown]
  - Glomerular filtration rate [Unknown]
